FAERS Safety Report 14869393 (Version 1)
Quarter: 2018Q2

REPORT INFORMATION
  Report Type: Spontaneous
  Country: US (occurrence: US)
  Receive Date: 20180509
  Receipt Date: 20180509
  Transmission Date: 20180711
  Serious: No
  Sender: FDA-Public Use
  Company Number: US-BAYER-2018-080464

PATIENT
  Age: 71 Year
  Sex: Female
  Weight: 65 kg

DRUGS (4)
  1. CLARITIN [Suspect]
     Active Substance: LORATADINE
     Indication: BONE PAIN
  2. CLARITIN [Suspect]
     Active Substance: LORATADINE
     Indication: WHITE BLOOD CELL COUNT
     Dosage: 1 DF, QD
     Route: 048
     Dates: start: 2015
  3. CLARITIN [Suspect]
     Active Substance: LORATADINE
     Indication: MUSCLE SPASMS
  4. AMLODIPINE [Concomitant]
     Active Substance: AMLODIPINE BESYLATE

REACTIONS (4)
  - Product use in unapproved indication [Unknown]
  - Product use in unapproved indication [Unknown]
  - Therapeutic response unexpected [Unknown]
  - Therapeutic response unexpected [Unknown]

NARRATIVE: CASE EVENT DATE: 2015
